FAERS Safety Report 7684916-9 (Version None)
Quarter: 2011Q3

REPORT INFORMATION
  Report Type: 
  Country: None (occurrence: None)
  Receive Date: 20110810
  Receipt Date: 20110726
  Transmission Date: 20111222
  Serious: Yes (Other)
  Sender: FDA-Public Use
  Company Number: PCF.72611.RT.5F

PATIENT
  Age: 63 Year
  Sex: Male

DRUGS (4)
  1. FLUOROURACIL [Suspect]
     Indication: ACTINIC KERATOSIS
     Dosage: ONCE A DAY AT NIGHT
     Dates: start: 20110609, end: 20110611
  2. VITAMIN B-12 [Concomitant]
  3. VITAMIN B [Concomitant]
  4. MULTI-VITAMINS [Concomitant]

REACTIONS (2)
  - MUSCULOSKELETAL DISCOMFORT [None]
  - PAPULE [None]
